FAERS Safety Report 15938218 (Version 1)
Quarter: 2019Q1

REPORT INFORMATION
  Report Type: Spontaneous
  Country: US (occurrence: US)
  Receive Date: 20190208
  Receipt Date: 20190208
  Transmission Date: 20190417
  Serious: No
  Sender: FDA-Public Use
  Company Number: US-ROCHE-2183668

PATIENT
  Age: 46 Year
  Sex: Female

DRUGS (2)
  1. XOLAIR [Suspect]
     Active Substance: OMALIZUMAB
     Indication: IDIOPATHIC URTICARIA
     Dosage: ONGOING
     Route: 058
     Dates: start: 20180618
  2. XOLAIR [Suspect]
     Active Substance: OMALIZUMAB
     Dosage: ONGOING
     Route: 058
     Dates: start: 20180619

REACTIONS (6)
  - Rash erythematous [Recovered/Resolved]
  - Headache [Recovered/Resolved]
  - Headache [Unknown]
  - Rash pruritic [Unknown]
  - Rash erythematous [Unknown]
  - Rash pruritic [Recovered/Resolved]

NARRATIVE: CASE EVENT DATE: 20180815
